FAERS Safety Report 6653564-1 (Version None)
Quarter: 2010Q1

REPORT INFORMATION
  Report Type: 
  Country: None (occurrence: None)
  Receive Date: 20100326
  Receipt Date: 20100316
  Transmission Date: 20100710
  Serious: Yes (Death, Other)
  Sender: FDA-Public Use
  Company Number: JP-PFIZER INC-2009267316

PATIENT
  Age: 75 Year
  Sex: Male

DRUGS (2)
  1. ZYVOX [Suspect]
     Indication: STAPHYLOCOCCAL INFECTION
     Dosage: 1200 MG/DAY
     Route: 042
     Dates: start: 20090218
  2. ZYVOX [Suspect]
     Dosage: 1200MG /DAY, 7DAY EVERY 2 WEEKS
     Route: 048

REACTIONS (5)
  - DIARRHOEA [None]
  - PNEUMONIA [None]
  - RESPIRATORY FAILURE [None]
  - THROMBOCYTOPENIA [None]
  - VISION BLURRED [None]
